FAERS Safety Report 7149807-0 (Version None)
Quarter: 2010Q4

REPORT INFORMATION
  Report Type: 
  Country: None (occurrence: None)
  Receive Date: 20101210
  Receipt Date: 20101201
  Transmission Date: 20110411
  Serious: No
  Sender: FDA-Public Use
  Company Number: US-BIOGENIDEC-2010BI042232

PATIENT
  Age: 47 Year
  Sex: Female

DRUGS (5)
  1. TYSABRI [Suspect]
     Indication: MULTIPLE SCLEROSIS
     Route: 042
     Dates: start: 20080225, end: 20101001
  2. LIDOCAINE INFUSIONS [Concomitant]
     Indication: NEURALGIA
     Route: 042
  3. LIDOCAINE INFUSIONS [Concomitant]
     Indication: PAIN
     Route: 042
  4. BACLOFEN [Concomitant]
     Indication: NEURALGIA
     Route: 037
  5. MORPHINE INTRATHECAL PUMP [Concomitant]
     Indication: NEURALGIA
     Route: 037

REACTIONS (4)
  - NEURALGIA [None]
  - PAIN [None]
  - URINARY TRACT INFECTION [None]
  - VITAMIN D DEFICIENCY [None]
